FAERS Safety Report 6283445-7 (Version None)
Quarter: 2009Q3

REPORT INFORMATION
  Report Type: 
  Country: None (occurrence: None)
  Receive Date: 20090721
  Receipt Date: 20090721
  Transmission Date: 20100115
  Serious: Yes (Disabling)
  Sender: FDA-Public Use
  Company Number: None

PATIENT
  Sex: Female
  Weight: 64.5 kg

DRUGS (8)
  1. ACTONEL [Suspect]
     Indication: OSTEOPENIA
     Dosage: 35 MG ACTONEL PILL ONCE A WEEK ORAL 047
     Route: 048
     Dates: start: 20030113, end: 20090629
  2. VIOXX [Concomitant]
  3. ALEVE [Concomitant]
  4. AMITRIPTYLINE HCL [Concomitant]
  5. FLEXERAL [Concomitant]
  6. SINGULAIR [Concomitant]
  7. VAGIFEM (VAGINAL ESTROGEN) [Concomitant]
  8. EXCELDERM [Concomitant]

REACTIONS (4)
  - BARRETT'S OESOPHAGUS [None]
  - GASTROOESOPHAGEAL REFLUX DISEASE [None]
  - HIATUS HERNIA [None]
  - PAIN [None]
